FAERS Safety Report 12189361 (Version 1)
Quarter: 2016Q1

REPORT INFORMATION
  Report Type: Spontaneous
  Country: GB (occurrence: GB)
  Receive Date: 20160317
  Receipt Date: 20160317
  Transmission Date: 20160526
  Serious: Yes (Hospitalization, Other)
  Sender: FDA-Public Use
  Company Number: GB-AMGEN-GBRSP2016032028

PATIENT
  Age: 56 Year
  Sex: Male

DRUGS (2)
  1. CABAZITAXEL [Concomitant]
     Active Substance: CABAZITAXEL
     Dosage: UNK
  2. NEULASTA [Suspect]
     Active Substance: PEGFILGRASTIM
     Indication: PRODUCT USED FOR UNKNOWN INDICATION
     Dosage: UNK
     Route: 065

REACTIONS (17)
  - Blood creatinine abnormal [Unknown]
  - Condition aggravated [Unknown]
  - Cold sweat [Unknown]
  - Muscle twitching [Unknown]
  - Oedema peripheral [Unknown]
  - Pain [Not Recovered/Not Resolved]
  - Blood urea abnormal [Unknown]
  - Fall [Unknown]
  - Dyspnoea exertional [Not Recovered/Not Resolved]
  - Transurethral prostatectomy [Unknown]
  - Muscular weakness [Unknown]
  - Hyperhidrosis [Unknown]
  - Haemoglobin abnormal [Unknown]
  - Abnormal dreams [Unknown]
  - Insomnia [Not Recovered/Not Resolved]
  - Dyskinesia [Unknown]
  - Dizziness [Unknown]
